FAERS Safety Report 9008849 (Version 1)
Quarter: 2013Q1

REPORT INFORMATION
  Report Type: Report from Study
  Country: JP (occurrence: JP)
  Receive Date: 20130111
  Receipt Date: 20130111
  Transmission Date: 20140127
  Serious: Yes (Hospitalization)
  Sender: FDA-Public Use
  Company Number: JP-009507513-1301JPN003880

PATIENT
  Age: 48 Year
  Sex: Male
  Weight: 88 kg

DRUGS (7)
  1. PEGINTRON [Suspect]
     Indication: CHRONIC HEPATITIS C
     Dosage: 1.5 MICROGRAM PER KILOGRAM, QW
     Route: 058
     Dates: start: 20120427, end: 20121005
  2. REBETOL [Suspect]
     Indication: CHRONIC HEPATITIS C
     Dosage: 1000 MG, QD
     Route: 048
     Dates: start: 20120427
  3. REBETOL [Suspect]
     Dosage: 800 MG, QD
     Route: 048
     Dates: start: 20120803
  4. REBETOL [Suspect]
     Dosage: 400 MG, QD
     Route: 048
     Dates: start: 20120810
  5. REBETOL [Suspect]
     Dosage: 800 MG, QD
     Route: 048
     Dates: start: 20120830
  6. REBETOL [Suspect]
     Dosage: 1000 MG, QD
     Route: 048
     Dates: start: 20120921, end: 20121011
  7. TELAVIC [Suspect]
     Indication: CHRONIC HEPATITIS C
     Dosage: 2250 MG, QD
     Route: 048
     Dates: start: 20120427, end: 20120720

REACTIONS (1)
  - Anaemia [Recovering/Resolving]
